FAERS Safety Report 5205697-4 (Version None)
Quarter: 2007Q1

REPORT INFORMATION
  Report Type: 
  Country: None (occurrence: None)
  Receive Date: 20070105
  Receipt Date: 20070105
  Transmission Date: 20070707
  Serious: Yes (Life-Threatening, Hospitalization)
  Sender: FDA-Public Use
  Company Number: None

PATIENT
  Age: 55 Year
  Sex: Male
  Weight: 70.3075 kg

DRUGS (1)
  1. AVELOX [Suspect]
     Indication: SINUSITIS
     Dosage: 400MG 1 X DAILY PO
     Route: 048
     Dates: start: 20061015, end: 20061122

REACTIONS (33)
  - ASTHENIA [None]
  - AUTOIMMUNE DISORDER [None]
  - BLISTER [None]
  - DEHYDRATION [None]
  - DIARRHOEA [None]
  - DRUG HYPERSENSITIVITY [None]
  - DYSGEUSIA [None]
  - ERYTHEMA [None]
  - FATIGUE [None]
  - GAIT DISTURBANCE [None]
  - GENERALISED OEDEMA [None]
  - HEPATIC ENZYME INCREASED [None]
  - HYPERSENSITIVITY [None]
  - INFLUENZA LIKE ILLNESS [None]
  - LYMPHADENOPATHY [None]
  - NEUROPATHY [None]
  - PAIN [None]
  - PARAESTHESIA [None]
  - PHARYNGEAL OEDEMA [None]
  - PYREXIA [None]
  - RASH [None]
  - RASH MACULAR [None]
  - RASH PRURITIC [None]
  - RENAL IMPAIRMENT [None]
  - SKIN EXFOLIATION [None]
  - STEVENS-JOHNSON SYNDROME [None]
  - STRAWBERRY TONGUE [None]
  - SWELLING [None]
  - SWOLLEN TONGUE [None]
  - VIRAL INFECTION [None]
  - VOMITING [None]
  - WEIGHT DECREASED [None]
  - WHITE BLOOD CELL COUNT INCREASED [None]
